FAERS Safety Report 8020495-4 (Version None)
Quarter: 2012Q1

REPORT INFORMATION
  Report Type: 
  Country: None (occurrence: None)
  Receive Date: 20120103
  Receipt Date: 20111228
  Transmission Date: 20120608
  Serious: Yes (Death)
  Sender: FDA-Public Use
  Company Number: US-CELGENEUS-163-21880-11111393

PATIENT
  Sex: Male

DRUGS (7)
  1. REVLIMID [Suspect]
     Indication: MULTIPLE MYELOMA
     Dosage: 5 MILLIGRAM
     Route: 048
     Dates: start: 20110517, end: 20110709
  2. METFORMIN HCL [Concomitant]
     Dosage: 500MG-1000MG
     Route: 065
  3. COUMADIN [Concomitant]
     Dosage: 7.5 MILLIGRAM
     Route: 065
  4. COUMADIN [Concomitant]
     Indication: ATRIAL FIBRILLATION
  5. ACTOS [Concomitant]
     Dosage: 1 PILL
     Route: 065
  6. PLASMA [Concomitant]
     Dosage: 2 UNITS
     Route: 041
     Dates: start: 20110101
  7. RED BLOOD CELLS [Concomitant]
     Indication: RED BLOOD CELL COUNT DECREASED
     Route: 041
     Dates: start: 20110101, end: 20110101

REACTIONS (1)
  - MULTIPLE MYELOMA [None]
